FAERS Safety Report 7327124-3 (Version None)
Quarter: 2011Q1

REPORT INFORMATION
  Report Type: 
  Country: None (occurrence: None)
  Receive Date: 20110302
  Receipt Date: 20110215
  Transmission Date: 20110831
  Serious: Yes (Other)
  Sender: FDA-Public Use
  Company Number: DE-GENENTECH-313518

PATIENT
  Sex: Male

DRUGS (1)
  1. RANIBIZUMAB [Suspect]
     Indication: MACULAR DEGENERATION
     Dosage: UNK
     Route: 031
     Dates: start: 20090731

REACTIONS (5)
  - UPPER LIMB FRACTURE [None]
  - VISUAL ACUITY REDUCED [None]
  - FALL [None]
  - RETINAL SCAR [None]
  - MALAISE [None]
